FAERS Safety Report 24688988 (Version 4)
Quarter: 2025Q4

REPORT INFORMATION
  Report Type: Report from Study
  Country: JP (occurrence: JP)
  Receive Date: 20241203
  Receipt Date: 20251208
  Transmission Date: 20260118
  Serious: Yes (Life-Threatening, Other)
  Sender: ARGENX BVBA
  Company Number: JP-ARGENX-2024-ARGX-JP003041AA

PATIENT

DRUGS (65)
  1. EFGARTIGIMOD ALFA [Suspect]
     Active Substance: EFGARTIGIMOD ALFA
     Indication: Immune thrombocytopenia
     Dosage: 10 MG/KG
     Route: 042
     Dates: start: 20240430, end: 20251028
  2. ELTROMBOPAG [Suspect]
     Active Substance: ELTROMBOPAG
     Dosage: 12.5 MG, DAILY
     Route: 048
     Dates: start: 20240507, end: 20240729
  3. ELTROMBOPAG [Suspect]
     Active Substance: ELTROMBOPAG
     Indication: Immune thrombocytopenia
     Dosage: 12.5 MG
     Route: 048
  4. ELTROMBOPAG [Suspect]
     Active Substance: ELTROMBOPAG
     Dosage: 12.5 MG
     Route: 048
  5. ELTROMBOPAG [Suspect]
     Active Substance: ELTROMBOPAG
     Dosage: 12.5 MG
     Route: 048
  6. ELTROMBOPAG [Suspect]
     Active Substance: ELTROMBOPAG
     Dosage: 25 MG, DAILY
     Route: 048
     Dates: start: 20240730
  7. ELTROMBOPAG [Suspect]
     Active Substance: ELTROMBOPAG
     Dosage: 25 MG
     Route: 048
  8. ELTROMBOPAG [Suspect]
     Active Substance: ELTROMBOPAG
     Dosage: 25 MG
     Route: 048
  9. ELTROMBOPAG [Suspect]
     Active Substance: ELTROMBOPAG
     Dosage: 25 MG
     Route: 048
  10. ELTROMBOPAG [Suspect]
     Active Substance: ELTROMBOPAG
     Dosage: 37.5 MG
     Route: 048
  11. ELTROMBOPAG [Suspect]
     Active Substance: ELTROMBOPAG
     Dosage: 50 MG
     Route: 048
  12. PREDONINE [Suspect]
     Active Substance: PREDNISOLONE
     Dosage: 1 MG, DAILY
     Route: 048
     Dates: start: 20241119, end: 20241125
  13. PREDONINE [Suspect]
     Active Substance: PREDNISOLONE
     Dosage: 1 MG, DAILY
     Route: 048
     Dates: start: 20250401, end: 20250602
  14. PREDONINE [Suspect]
     Active Substance: PREDNISOLONE
     Dosage: 1 MG
     Route: 048
  15. PREDONINE [Suspect]
     Active Substance: PREDNISOLONE
     Dosage: 1 MG
     Route: 048
  16. PREDONINE [Suspect]
     Active Substance: PREDNISOLONE
     Dosage: 10 MG, DAILY
     Route: 048
     Dates: start: 20240521, end: 20240617
  17. PREDONINE [Suspect]
     Active Substance: PREDNISOLONE
     Dosage: 10 MG, DAILY
     Route: 048
     Dates: start: 20250826, end: 20251006
  18. PREDONINE [Suspect]
     Active Substance: PREDNISOLONE
     Dosage: 10 MG
     Route: 065
  19. PREDONINE [Suspect]
     Active Substance: PREDNISOLONE
     Dosage: 10 MG
     Route: 065
  20. PREDONINE [Suspect]
     Active Substance: PREDNISOLONE
     Dosage: 15 MG, DAILY
     Route: 048
     Dates: end: 20240520
  21. PREDONINE [Suspect]
     Active Substance: PREDNISOLONE
     Dosage: 2 MG, DAILY
     Route: 048
     Dates: start: 20241112, end: 20241118
  22. PREDONINE [Suspect]
     Active Substance: PREDNISOLONE
     Dosage: 2 MG, DAILY
     Route: 048
     Dates: start: 20250311, end: 20250331
  23. PREDONINE [Suspect]
     Active Substance: PREDNISOLONE
     Dosage: 2 MG
     Route: 048
  24. PREDONINE [Suspect]
     Active Substance: PREDNISOLONE
     Dosage: 2 MG
     Route: 048
  25. PREDONINE [Suspect]
     Active Substance: PREDNISOLONE
     Dosage: 20 MG
     Route: 065
  26. PREDONINE [Suspect]
     Active Substance: PREDNISOLONE
     Dosage: 25 MG
     Route: 065
  27. PREDONINE [Suspect]
     Active Substance: PREDNISOLONE
     Dosage: 3 MG, DAILY
     Route: 048
     Dates: start: 20241029, end: 20241111
  28. PREDONINE [Suspect]
     Active Substance: PREDNISOLONE
     Dosage: 3 MG, DAILY
     Route: 048
     Dates: start: 20241210, end: 20250310
  29. PREDONINE [Suspect]
     Active Substance: PREDNISOLONE
     Dosage: 3 MG, DAILY
     Route: 048
     Dates: start: 20250701, end: 20250721
  30. PREDONINE [Suspect]
     Active Substance: PREDNISOLONE
     Dosage: 3 MG, DAILY
     Route: 048
     Dates: start: 20250729, end: 20250804
  31. PREDONINE [Suspect]
     Active Substance: PREDNISOLONE
     Dosage: 3 MG
     Route: 048
  32. PREDONINE [Suspect]
     Active Substance: PREDNISOLONE
     Dosage: 3 MG
     Route: 048
  33. PREDONINE [Suspect]
     Active Substance: PREDNISOLONE
     Dosage: 3 MG
     Route: 065
  34. PREDONINE [Suspect]
     Active Substance: PREDNISOLONE
     Dosage: 3 MG
     Route: 065
  35. PREDONINE [Suspect]
     Active Substance: PREDNISOLONE
     Indication: Immune thrombocytopenia
     Dosage: 35 MG
     Route: 065
     Dates: start: 201707
  36. PREDONINE [Suspect]
     Active Substance: PREDNISOLONE
     Dosage: 5 MG, DAILY
     Route: 048
     Dates: start: 20240625
  37. PREDONINE [Suspect]
     Active Substance: PREDNISOLONE
     Dosage: 5 MG, DAILY
     Route: 048
     Dates: start: 20241126, end: 20241209
  38. PREDONINE [Suspect]
     Active Substance: PREDNISOLONE
     Dosage: 5 MG, DAILY
     Route: 048
     Dates: start: 20250603, end: 20250630
  39. PREDONINE [Suspect]
     Active Substance: PREDNISOLONE
     Dosage: 5 MG, DAILY
     Route: 048
     Dates: start: 20250722, end: 20250728
  40. PREDONINE [Suspect]
     Active Substance: PREDNISOLONE
     Dosage: 5 MG, DAILY
     Route: 048
     Dates: start: 20250805, end: 20250825
  41. PREDONINE [Suspect]
     Active Substance: PREDNISOLONE
     Dosage: 5 MG
     Route: 048
  42. PREDONINE [Suspect]
     Active Substance: PREDNISOLONE
     Dosage: 5 MG
     Route: 048
  43. PREDONINE [Suspect]
     Active Substance: PREDNISOLONE
     Dosage: 5 MG
     Route: 065
  44. PREDONINE [Suspect]
     Active Substance: PREDNISOLONE
     Dosage: 5 MG
     Route: 065
  45. PREDONINE [Suspect]
     Active Substance: PREDNISOLONE
     Dosage: 7.5 MG, DAILY
     Route: 048
     Dates: start: 20240618, end: 20240624
  46. PREDONINE [Suspect]
     Active Substance: PREDNISOLONE
     Dosage: 8 MG, DAILY
     Route: 048
     Dates: start: 20251007, end: 20251028
  47. PREDONINE [Suspect]
     Active Substance: PREDNISOLONE
     Dosage: 8 MG
     Route: 065
  48. AMOXICILLIN [Concomitant]
     Active Substance: AMOXICILLIN
     Indication: Product used for unknown indication
     Dosage: 1 DOSAGE FORM, TID
     Route: 048
  49. AUGMENTIN [Concomitant]
     Active Substance: AMOXICILLIN\CLAVULANATE POTASSIUM
     Indication: Product used for unknown indication
     Dosage: 1 DOSAGE FORM, TID
     Route: 048
     Dates: start: 20250325, end: 20250331
  50. DESLORATADINE [Concomitant]
     Active Substance: DESLORATADINE
     Indication: Product used for unknown indication
     Dosage: 1 DOSAGE FORM, DAILY
     Route: 048
  51. ELDECALCITOL [Concomitant]
     Active Substance: ELDECALCITOL
     Indication: Prophylaxis
     Dosage: 0.75 UG, DAILY
     Route: 048
  52. CARBOCYSTEINE [Concomitant]
     Active Substance: CARBOCYSTEINE
     Indication: Product used for unknown indication
     Dosage: 1 DOSAGE FORM, TID
     Route: 048
     Dates: start: 20250325, end: 20250331
  53. LORELCO [Concomitant]
     Active Substance: PROBUCOL
     Indication: Product used for unknown indication
     Dosage: 250 MG, BID
     Route: 048
     Dates: end: 20240617
  54. PRAVASTATIN SODIUM [Concomitant]
     Active Substance: PRAVASTATIN SODIUM
     Indication: Product used for unknown indication
     Dosage: 10 MG, DAILY
     Route: 048
     Dates: end: 20240624
  55. ELTROMBOPAG OLAMINE [Concomitant]
     Active Substance: ELTROMBOPAG OLAMINE
     Dosage: 12.5 MG, DAILY
     Route: 048
     Dates: start: 20250325, end: 20250519
  56. ELTROMBOPAG OLAMINE [Concomitant]
     Active Substance: ELTROMBOPAG OLAMINE
     Indication: Myasthenia gravis
     Dosage: 25 MG, DAILY
     Route: 048
     Dates: start: 20240730, end: 20250324
  57. ELTROMBOPAG OLAMINE [Concomitant]
     Active Substance: ELTROMBOPAG OLAMINE
     Dosage: 25 MG, DAILY
     Route: 048
     Dates: start: 20250520, end: 20250915
  58. RABEPRAZOLE SODIUM [Concomitant]
     Active Substance: RABEPRAZOLE SODIUM
     Indication: Prophylaxis
     Dosage: 10 MG, DAILY
     Route: 048
  59. TAVALISSE [Concomitant]
     Active Substance: FOSTAMATINIB
     Dosage: 150 MG, BID
     Route: 048
  60. TAVALISSE [Concomitant]
     Active Substance: FOSTAMATINIB
     Indication: Immune thrombocytopenia
     Dosage: 200 MG
     Route: 048
     Dates: start: 202307
  61. TAVALISSE [Concomitant]
     Active Substance: FOSTAMATINIB
     Dosage: 200 MG
     Route: 048
  62. TAVALISSE [Concomitant]
     Active Substance: FOSTAMATINIB
     Dosage: 200 MG
     Route: 048
  63. TAVALISSE [Concomitant]
     Active Substance: FOSTAMATINIB
     Dosage: 300 MG
     Route: 048
  64. TAVALISSE [Concomitant]
     Active Substance: FOSTAMATINIB
     Dosage: 300 MG
     Route: 048
  65. VALACYCLOVIR HYDROCHLORIDE [Concomitant]
     Active Substance: VALACYCLOVIR HYDROCHLORIDE
     Indication: Product used for unknown indication
     Dosage: 500 MG, BID
     Route: 065
     Dates: start: 20250624, end: 20250628

REACTIONS (16)
  - Platelet count decreased [Recovered/Resolved]
  - Platelet count decreased [Recovered/Resolved]
  - Immune thrombocytopenia [Recovered/Resolved]
  - Pyrexia [Recovered/Resolved]
  - Conjunctival haemorrhage [Recovered/Resolved]
  - Therapeutic response decreased [Unknown]
  - Viral infection [Unknown]
  - Sinusitis [Recovered/Resolved]
  - Oral herpes [Recovered/Resolved]
  - C-reactive protein increased [Recovered/Resolved]
  - Immune thrombocytopenia [Recovered/Resolved]
  - Immune thrombocytopenia [Recovered/Resolved]
  - Immune thrombocytopenia [Recovered/Resolved]
  - Platelet count decreased [Recovered/Resolved]
  - Platelet count decreased [Recovered/Resolved]
  - Platelet count decreased [Recovered/Resolved]

NARRATIVE: CASE EVENT DATE: 20240507
